FAERS Safety Report 7455341-0 (Version None)
Quarter: 2011Q2

REPORT INFORMATION
  Report Type: 
  Country: None (occurrence: None)
  Receive Date: 20110503
  Receipt Date: 20110427
  Transmission Date: 20111010
  Serious: Yes (Other)
  Sender: FDA-Public Use
  Company Number: US-PFIZER INC-2011091550

PATIENT
  Sex: Female
  Weight: 81.633 kg

DRUGS (1)
  1. GEODON [Suspect]
     Indication: ANXIETY
     Dosage: 20 MG, 2X/DAY
     Dates: start: 20090101

REACTIONS (5)
  - WEIGHT INCREASED [None]
  - ANXIETY [None]
  - HYPERTENSION [None]
  - DRUG WITHDRAWAL SYNDROME [None]
  - TENSION [None]
